FAERS Safety Report 7745674-2 (Version None)
Quarter: 2011Q3

REPORT INFORMATION
  Report Type: 
  Country: None (occurrence: None)
  Receive Date: 20110913
  Receipt Date: 20110902
  Transmission Date: 20111222
  Serious: Yes (Other)
  Sender: FDA-Public Use
  Company Number: US-BAYER-2011-066591

PATIENT
  Age: 36 Year
  Sex: Female

DRUGS (2)
  1. MIRENA [Suspect]
     Dosage: 20 ?G, CONT
     Route: 015
     Dates: start: 20100801, end: 20110501
  2. ANTIBIOTICS [Concomitant]
     Indication: BACTERIAL INFECTION

REACTIONS (5)
  - UTERINE POLYP [None]
  - ABDOMINAL INFECTION [None]
  - MENORRHAGIA [None]
  - METRORRHAGIA [None]
  - DEVICE EXPULSION [None]
